FAERS Safety Report 5619984-9 (Version None)
Quarter: 2008Q1

REPORT INFORMATION
  Report Type: 
  Country: None (occurrence: None)
  Receive Date: 20080208
  Receipt Date: 20080128
  Transmission Date: 20080703
  Serious: Yes (Hospitalization)
  Sender: FDA-Public Use
  Company Number: FR-ROCHE-543996

PATIENT
  Age: 52 Year
  Sex: Female

DRUGS (4)
  1. XELODA [Suspect]
     Dosage: DOSE REPORTED AS 2000 MG/M
     Route: 048
     Dates: start: 20070801, end: 20070820
  2. XELODA [Suspect]
     Dosage: 2 DOSE FORM IN MORNING AND EVENING FOR 14 DAYS FOLLOWED BY 7 DAYS WITHOUT DRUG
     Route: 048
  3. TYVERB [Suspect]
     Dosage: DOSAGE REGIMEN REPORTED AS  1250 MG Q
     Route: 048
     Dates: start: 20070801, end: 20070820
  4. TYVERB [Suspect]
     Route: 048

REACTIONS (4)
  - ANOREXIA [None]
  - ASTHENIA [None]
  - DIARRHOEA [None]
  - FISTULA [None]
